FAERS Safety Report 25852742 (Version 1)
Quarter: 2025Q3

REPORT INFORMATION
  Report Type: Spontaneous
  Country: US (occurrence: None)
  Receive Date: 20250925
  Receipt Date: 20250925
  Transmission Date: 20251020
  Serious: Yes (Hospitalization)
  Sender: FDA-CTU
  Company Number: None

PATIENT
  Age: 52 Year
  Sex: Female

DRUGS (3)
  1. CAPECITABINE [Suspect]
     Active Substance: CAPECITABINE
     Indication: Breast cancer female
     Route: 048
     Dates: start: 20250306
  2. XELODA [Concomitant]
     Active Substance: CAPECITABINE
  3. DEVICE [Suspect]
     Active Substance: DEVICE
     Indication: Mammoplasty

REACTIONS (5)
  - Mammoplasty [None]
  - Device related infection [None]
  - Full blood count decreased [None]
  - White blood cell count decreased [None]
  - Platelet count decreased [None]

NARRATIVE: CASE EVENT DATE: 20250816
